FAERS Safety Report 22063204 (Version 3)
Quarter: 2023Q2

REPORT INFORMATION
  Report Type: Spontaneous
  Country: FI (occurrence: FI)
  Receive Date: 20230306
  Receipt Date: 20230503
  Transmission Date: 20230721
  Serious: Yes (Other)
  Sender: FDA-Public Use
  Company Number: FI-ORGANON-O2302FIN002333

PATIENT
  Age: 75 Year
  Sex: Female

DRUGS (3)
  1. SINEMET [Suspect]
     Active Substance: CARBIDOPA\LEVODOPA
     Dosage: 1 DOSAGE FORM, QID (1 TABLET X 4 / DAY)
     Route: 048
     Dates: start: 20220110
  2. CARBIDOPA\LEVODOPA [Suspect]
     Active Substance: CARBIDOPA\LEVODOPA
     Dosage: 1 DOSAGE FORM, QD (1 TABLET IN THE EVENINGS AT AROUND 10:30 PM)
     Route: 048
     Dates: start: 20220110
  3. AMLODIPIN ORION [AMLODIPINE BESILATE] [Concomitant]
     Indication: Blood pressure abnormal
     Dosage: 1 TABLET OF 5MG / DAY
     Dates: start: 2022

REACTIONS (8)
  - Parkinson^s disease [Unknown]
  - Spinal stenosis [Unknown]
  - Drug ineffective [Unknown]
  - Muscle spasms [Unknown]
  - Insomnia [Not Recovered/Not Resolved]
  - Erythema [Unknown]
  - Peripheral swelling [Unknown]
  - Movement disorder [Unknown]

NARRATIVE: CASE EVENT DATE: 20220101
